FAERS Safety Report 9655304 (Version 2)
Quarter: 2013Q4

REPORT INFORMATION
  Report Type: Spontaneous
  Country: US (occurrence: US)
  Receive Date: 20131029
  Receipt Date: 20131029
  Transmission Date: 20140711
  Serious: No
  Sender: FDA-Public Use
  Company Number: US-PURDUE-USA-2010-0058434

PATIENT
  Sex: Male

DRUGS (2)
  1. OXYCONTIN (NDA 22-272) [Suspect]
     Indication: BACK PAIN
     Dosage: 80 MG, Q8H
     Route: 048
     Dates: start: 20100914, end: 2010
  2. OXYCONTIN (NDA 22-272) [Suspect]
     Dosage: 40 MG, UNK

REACTIONS (8)
  - Muscle spasms [Unknown]
  - Pain [Unknown]
  - General physical health deterioration [Unknown]
  - Fatigue [Unknown]
  - Drug effect decreased [Unknown]
  - Drug effect delayed [Unknown]
  - Sedation [Unknown]
  - Constipation [Unknown]
